FAERS Safety Report 6591001-6 (Version None)
Quarter: 2010Q1

REPORT INFORMATION
  Report Type: 
  Country: None (occurrence: None)
  Receive Date: 20100219
  Receipt Date: 20100209
  Transmission Date: 20100710
  Serious: Yes (Hospitalization, Other)
  Sender: FDA-Public Use
  Company Number: US-ELI_LILLY_AND_COMPANY-US201002003013

PATIENT
  Sex: Male

DRUGS (1)
  1. HUMALOG [Suspect]
     Route: 058
     Dates: start: 20080401

REACTIONS (5)
  - BLOOD GLUCOSE INCREASED [None]
  - DELIRIUM [None]
  - DRUG INEFFECTIVE [None]
  - POLLAKIURIA [None]
  - THIRST [None]
